FAERS Safety Report 13603751 (Version 1)
Quarter: 2017Q2

REPORT INFORMATION
  Report Type: Report from Study
  Country: RO (occurrence: RO)
  Receive Date: 20170602
  Receipt Date: 20170602
  Transmission Date: 20170830
  Serious: Yes (Death, Other)
  Sender: FDA-Public Use
  Company Number: RO-ROCHE-1942472

PATIENT
  Sex: Male
  Weight: 65 kg

DRUGS (1)
  1. AVASTIN [Suspect]
     Active Substance: BEVACIZUMAB
     Indication: BENIGN SOFT TISSUE NEOPLASM
     Dosage: 25MG/16ML
     Route: 042
     Dates: start: 201611

REACTIONS (3)
  - Death [Fatal]
  - Off label use [Fatal]
  - Weight decreased [Unknown]
